FAERS Safety Report 6590703-5 (Version None)
Quarter: 2010Q1

REPORT INFORMATION
  Report Type: 
  Country: None (occurrence: None)
  Receive Date: 20100219
  Receipt Date: 20100210
  Transmission Date: 20100710
  Serious: Yes (Hospitalization)
  Sender: FDA-Public Use
  Company Number: DE-JNJFOC-20100207004

PATIENT
  Age: 59 Year
  Sex: Female
  Weight: 73 kg

DRUGS (5)
  1. REOPRO [Suspect]
     Indication: DRUG USE FOR UNKNOWN INDICATION
  2. ASPIRIN [Suspect]
     Indication: DRUG USE FOR UNKNOWN INDICATION
  3. PRASUGREL [Suspect]
     Indication: ACUTE CORONARY SYNDROME
  4. PRASUGREL [Suspect]
  5. HEPARIN [Suspect]
     Indication: DRUG USE FOR UNKNOWN INDICATION

REACTIONS (1)
  - PUNCTURE SITE HAEMORRHAGE [None]
